FAERS Safety Report 7906996-5 (Version None)
Quarter: 2011Q4

REPORT INFORMATION
  Report Type: 
  Country: None (occurrence: None)
  Receive Date: 20111110
  Receipt Date: 20111107
  Transmission Date: 20120403
  Serious: Yes (Hospitalization, Other)
  Sender: FDA-Public Use
  Company Number: JP-PFIZER INC-2011273242

PATIENT
  Age: 14 Day

DRUGS (3)
  1. LIDOCAINE HYDROCHLORIDE [Suspect]
     Dosage: UNK
  2. DIAZEPAM [Suspect]
     Dosage: UNK
  3. TRICLOFOS SODIUM [Suspect]
     Dosage: UNK

REACTIONS (5)
  - ENCEPHALOPATHY NEONATAL [None]
  - CONVULSION [None]
  - ENCEPHALOPATHY [None]
  - CONVULSION NEONATAL [None]
  - FOETAL EXPOSURE DURING PREGNANCY [None]
